FAERS Safety Report 17800060 (Version 3)
Quarter: 2020Q3

REPORT INFORMATION
  Report Type: Report from Study
  Country: US (occurrence: US)
  Receive Date: 20200518
  Receipt Date: 20200814
  Transmission Date: 20201102
  Serious: Yes (Hospitalization, Other)
  Sender: FDA-Public Use
  Company Number: US-ACTELION-A-NJ2015-113286

PATIENT
  Age: 52 Year
  Sex: Female
  Weight: 61.22 kg

DRUGS (10)
  1. VELETRI [Suspect]
     Active Substance: EPOPROSTENOL
     Dosage: 81.35 NG/KG, PER MIN
     Route: 042
  2. VELETRI [Suspect]
     Active Substance: EPOPROSTENOL
     Dosage: 84.3 NG/KG, PER MIN
     Route: 042
  3. VELETRI [Suspect]
     Active Substance: EPOPROSTENOL
     Dosage: 88.3 NG/KG, PER MIN
     Route: 042
  4. TRACLEER [Concomitant]
     Active Substance: BOSENTAN
     Indication: PULMONARY HYPERTENSION
     Dosage: UNK
     Route: 048
  5. NIFEDIPINE. [Concomitant]
     Active Substance: NIFEDIPINE
  6. VELETRI [Suspect]
     Active Substance: EPOPROSTENOL
     Dosage: 65 NG/KG, PER MIN
     Route: 042
     Dates: start: 20110329
  7. VELETRI [Suspect]
     Active Substance: EPOPROSTENOL
     Dosage: 80.36 NG/KG, PER MIN
     Route: 042
  8. VELETRI [Suspect]
     Active Substance: EPOPROSTENOL
     Dosage: 72 NG/KG, PER MIN
     Route: 042
  9. COUMADIN [Concomitant]
     Active Substance: WARFARIN SODIUM
  10. VELETRI [Suspect]
     Active Substance: EPOPROSTENOL
     Indication: PULMONARY HYPERTENSION
     Dosage: 85.3 NG/KG, PER MIN
     Route: 042

REACTIONS (23)
  - Decreased appetite [Unknown]
  - Device malfunction [Recovered/Resolved]
  - Condition aggravated [Unknown]
  - Palpitations [Unknown]
  - Device infusion issue [Unknown]
  - Chest pain [Unknown]
  - Dyspnoea [Unknown]
  - Device use issue [Recovered/Resolved]
  - Constipation [Unknown]
  - Weight decreased [Unknown]
  - Paracentesis [Unknown]
  - Dizziness [Unknown]
  - Cardiac failure [Unknown]
  - Nasal congestion [Unknown]
  - Fluid overload [Unknown]
  - Unevaluable event [Unknown]
  - Feeling hot [Unknown]
  - Pain in jaw [Unknown]
  - Flushing [Not Recovered/Not Resolved]
  - Diarrhoea [Not Recovered/Not Resolved]
  - Back pain [Unknown]
  - Dyspnoea exertional [Not Recovered/Not Resolved]
  - Malaise [Unknown]

NARRATIVE: CASE EVENT DATE: 20200730
